FAERS Safety Report 5237260-3 (Version None)
Quarter: 2007Q1

REPORT INFORMATION
  Report Type: 
  Country: None (occurrence: None)
  Receive Date: 20070213
  Receipt Date: 20070208
  Transmission Date: 20070707
  Serious: Yes (Death)
  Sender: FDA-Public Use
  Company Number: 2007UW02587

PATIENT
  Age: 4 Year
  Sex: Female

DRUGS (6)
  1. SEROQUEL [Suspect]
     Indication: BIPOLAR DISORDER
     Route: 048
  2. CLONIDINE [Suspect]
     Indication: AGGRESSION
  3. CLONIDINE [Suspect]
     Indication: SLEEP DISORDER
  4. VALPROIC ACID [Suspect]
  5. DEXTROMETHORPHAN [Suspect]
  6. CHLORTHENIRAMINE [Suspect]

REACTIONS (6)
  - CARDIAC DISORDER [None]
  - LETHARGY [None]
  - LUNG DISORDER [None]
  - MULTIPLE DRUG OVERDOSE [None]
  - SLUGGISHNESS [None]
  - VOMITING [None]
